FAERS Safety Report 8388393-4 (Version None)
Quarter: 2012Q2

REPORT INFORMATION
  Report Type: 
  Country: None (occurrence: None)
  Receive Date: 20120525
  Receipt Date: 20120514
  Transmission Date: 20120825
  Serious: Yes (Hospitalization)
  Sender: FDA-Public Use
  Company Number: CH-ELI_LILLY_AND_COMPANY-CH201205005649

PATIENT
  Age: 27 Year
  Sex: Male

DRUGS (9)
  1. ZYPREXA [Suspect]
     Dosage: 5 MG, QD
     Route: 048
     Dates: start: 20120120
  2. ZYPREXA [Suspect]
     Indication: SCHIZOPHRENIA, PARANOID TYPE
     Dosage: 10 MG, QD
     Route: 048
     Dates: start: 20090101, end: 20111210
  3. INVEGA [Concomitant]
     Dosage: 9 MG, QD
     Route: 048
     Dates: start: 20111101, end: 20111201
  4. ZYPREXA [Suspect]
     Dosage: 30 MG, QD
     Route: 048
     Dates: start: 20111215, end: 20111227
  5. ZYPREXA [Suspect]
     Dosage: 15 MG, QD
     Route: 048
     Dates: start: 20111228, end: 20120116
  6. ZYPREXA [Suspect]
     Dosage: 10 MG, QD
     Route: 048
     Dates: start: 20120117, end: 20120119
  7. DIPIPERON [Concomitant]
     Dosage: 40 MG, QD
     Route: 048
     Dates: start: 20111222, end: 20111227
  8. ZYPREXA [Suspect]
     Dosage: 20 MG, QD
     Route: 048
     Dates: start: 20111211, end: 20111214
  9. FLUANXOL [Concomitant]
     Dosage: 20 MG, MONTHLY (1/M)
     Route: 042
     Dates: start: 20090101, end: 20111101

REACTIONS (6)
  - ANXIETY [None]
  - BLOOD TRIGLYCERIDES INCREASED [None]
  - BLOOD CHOLESTEROL INCREASED [None]
  - OVERDOSE [None]
  - DRUG INTERACTION [None]
  - AKATHISIA [None]
